FAERS Safety Report 17331848 (Version 2)
Quarter: 2020Q1

REPORT INFORMATION
  Report Type: Spontaneous
  Country: BE (occurrence: BE)
  Receive Date: 20200128
  Receipt Date: 20200207
  Transmission Date: 20200409
  Serious: Yes (Hospitalization)
  Sender: FDA-Public Use
  Company Number: BE-ALLERGAN-2002374US

PATIENT
  Sex: Female

DRUGS (1)
  1. LEVONORGESTREL - BP [Suspect]
     Active Substance: LEVONORGESTREL
     Indication: CONTRACEPTION
     Dosage: 52 MG, SINGLE (20
     Route: 015
     Dates: start: 20170828, end: 20200106

REACTIONS (4)
  - Complication of device removal [Unknown]
  - Device breakage [Unknown]
  - Complication associated with device [Unknown]
  - Uterine perforation [Unknown]

NARRATIVE: CASE EVENT DATE: 20200106
